FAERS Safety Report 4262938-8 (Version None)
Quarter: 2004Q1

REPORT INFORMATION
  Report Type: 
  Country: None (occurrence: None)
  Receive Date: 20040102
  Receipt Date: 20040102
  Transmission Date: 20041129
  Serious: Yes (Other)
  Sender: FDA-Public Use
  Company Number: None

PATIENT
  Sex: Female
  Weight: 79 kg

DRUGS (2)
  1. INVANZ [Suspect]
     Indication: INTERVERTEBRAL DISC DISORDER
     Dosage: 1 GM Q24H INTRAVENOUS
     Route: 042
     Dates: start: 20031216, end: 20031231
  2. INVANZ [Suspect]
     Indication: STREPTOCOCCAL INFECTION
     Dosage: 1 GM Q24H INTRAVENOUS
     Route: 042
     Dates: start: 20031216, end: 20031231

REACTIONS (1)
  - TOOTH DISCOLOURATION [None]
